FAERS Safety Report 16232876 (Version 2)
Quarter: 2019Q2

REPORT INFORMATION
  Report Type: Spontaneous
  Country: US (occurrence: US)
  Receive Date: 20190424
  Receipt Date: 20190506
  Transmission Date: 20190711
  Serious: No
  Sender: FDA-Public Use
  Company Number: US-PFIZER INC-2018275264

PATIENT
  Age: 68 Year
  Sex: Female
  Weight: 56 kg

DRUGS (1)
  1. ALDACTONE [Suspect]
     Active Substance: SPIRONOLACTONE
     Indication: POLYCYSTIC OVARIES
     Dosage: 100 MG, 2X/DAY
     Route: 048
     Dates: start: 1998

REACTIONS (1)
  - Drug ineffective for unapproved indication [Recovered/Resolved]
